FAERS Safety Report 10645897 (Version 1)
Quarter: 2014Q4

REPORT INFORMATION
  Report Type: Spontaneous
  Country: GR (occurrence: GR)
  Receive Date: 20141211
  Receipt Date: 20141211
  Transmission Date: 20150529
  Serious: Yes (Other)
  Sender: FDA-Public Use
  Company Number: GR-MERCK-1412GRC004022

PATIENT
  Age: 68 Year
  Sex: Male

DRUGS (1)
  1. PEGINTRON [Suspect]
     Active Substance: PEGINTERFERON ALFA-2B
     Indication: SKIN CANCER
     Dosage: 120 MICROGRAM/0.5 ML IN PREFILLED PEN, ONCE WEEKLY
     Dates: start: 2010

REACTIONS (5)
  - Off label use [Unknown]
  - Product quality issue [Unknown]
  - Drug dose omission [Unknown]
  - Lung neoplasm malignant [Unknown]
  - Inappropriate schedule of drug administration [Unknown]

NARRATIVE: CASE EVENT DATE: 2010
